FAERS Safety Report 7685960-8 (Version None)
Quarter: 2011Q3

REPORT INFORMATION
  Report Type: 
  Country: None (occurrence: None)
  Receive Date: 20110811
  Receipt Date: 20110726
  Transmission Date: 20111222
  Serious: Yes (Hospitalization)
  Sender: FDA-Public Use
  Company Number: CIP10001732

PATIENT
  Age: 15 Year
  Sex: Male
  Weight: 61.0995 kg

DRUGS (2)
  1. URSO FALK [Concomitant]
  2. ASACOL [Suspect]
     Indication: COLITIS ULCERATIVE
     Dosage: 2.4 G DAILY, ORAL
     Route: 048
     Dates: start: 20100714, end: 20100728

REACTIONS (3)
  - DIARRHOEA HAEMORRHAGIC [None]
  - CHOLANGITIS SCLEROSING [None]
  - ASTHENIA [None]
